FAERS Safety Report 9443519 (Version 2)
Quarter: 2013Q3

REPORT INFORMATION
  Report Type: Spontaneous
  Country: GB (occurrence: None)
  Receive Date: 20130802
  Receipt Date: 20130815
  Transmission Date: 20140515
  Serious: Yes (Other)
  Sender: FDA-Public Use
  Company Number: AUR-APL-2013-06277

PATIENT
  Age: 70 Year
  Sex: Female

DRUGS (2)
  1. CITALOPRAM (CITALOPRAM) [Suspect]
     Indication: STRESS
  2. EFFEXOR [Suspect]
     Indication: MENTAL DISORDER

REACTIONS (6)
  - Feeling abnormal [None]
  - Drug dependence [None]
  - Headache [None]
  - Stress [None]
  - Serotonin syndrome [None]
  - Activities of daily living impaired [None]
